FAERS Safety Report 24271693 (Version 1)
Quarter: 2024Q3

REPORT INFORMATION
  Report Type: Spontaneous
  Country: ES (occurrence: ES)
  Receive Date: 20240902
  Receipt Date: 20240902
  Transmission Date: 20241016
  Serious: Yes (Other)
  Sender: ABBVIE
  Company Number: None

PATIENT
  Age: 47 Year
  Sex: Male

DRUGS (3)
  1. SKYRIZI [Suspect]
     Active Substance: RISANKIZUMAB-RZAA
     Indication: Psoriasis
     Dosage: FREQUENCY: EVERY DAY FOR 1 DAY?SKYRIZI 150 MG SOLUTION FOR INJECTION IN PRE-FILLED PEN, 1 PRE-FIL...
     Route: 058
     Dates: start: 20240311, end: 20240311
  2. SKYRIZI [Suspect]
     Active Substance: RISANKIZUMAB-RZAA
     Dosage: FREQUENCY: EVERY 28 DAYS FOR 28 DAYS ?FIRST ADMIN DATE- 2024?LAST ADMIN DATE- 2024?SKYRIZI 150 MG...
     Route: 058
  3. SKYRIZI [Suspect]
     Active Substance: RISANKIZUMAB-RZAA
     Dosage: FREQUENCY: EVERY 84 DAYS FOR 168 DAYS ?FIRST ADMIN DATE- 2024?SKYRIZI 150 MG SOLUTION FOR INJECTI...
     Route: 058

REACTIONS (1)
  - Dyspnoea [Recovering/Resolving]

NARRATIVE: CASE EVENT DATE: 20240409
